FAERS Safety Report 19927725 (Version 1)
Quarter: 2021Q4

REPORT INFORMATION
  Report Type: Spontaneous
  Country: FR (occurrence: FR)
  Receive Date: 20211007
  Receipt Date: 20211007
  Transmission Date: 20220303
  Serious: Yes (Hospitalization, Other)
  Sender: FDA-Public Use
  Company Number: FR-AFSSAPS-LY20217848

PATIENT
  Age: 94 Year
  Sex: Female
  Weight: 49 kg

DRUGS (5)
  1. LORATADINE [Suspect]
     Active Substance: LORATADINE
     Indication: Hypersensitivity
     Dosage: 1 DOSAGE FORM
     Route: 048
     Dates: start: 2021, end: 20210628
  2. HYDROCHLOROTHIAZIDE\LOSARTAN [Suspect]
     Active Substance: HYDROCHLOROTHIAZIDE\LOSARTAN
     Indication: Hypertension
     Dosage: 1 DOSAGE FORM
     Route: 048
     Dates: start: 2021, end: 20210628
  3. PAROXETINE [Suspect]
     Active Substance: PAROXETINE
     Indication: Depression
     Dosage: 1 DOSAGE FORM
     Route: 048
     Dates: start: 20210607, end: 20210628
  4. LACRINORM 0,2 %, gel ophtalmique en recipient unidose [Concomitant]
     Indication: Dry eye
     Dosage: 6 DOSAGE FORM
     Route: 047
     Dates: start: 20210414, end: 20210706
  5. SERESTA 10 mg, comprim [Concomitant]
     Indication: Depression
     Dosage: 1.5 DOSAGE FORM
     Route: 048
     Dates: start: 20210623

REACTIONS (1)
  - Hyponatraemia [Recovered/Resolved]

NARRATIVE: CASE EVENT DATE: 20210628
